FAERS Safety Report 7737386-6 (Version None)
Quarter: 2011Q3

REPORT INFORMATION
  Report Type: 
  Country: None (occurrence: None)
  Receive Date: 20110908
  Receipt Date: 20110830
  Transmission Date: 20111222
  Serious: Yes (Hospitalization)
  Sender: FDA-Public Use
  Company Number: JP-ALEXION PHARMACEUTICALS INC.-A201101327

PATIENT
  Age: 83 Year
  Sex: Female

DRUGS (3)
  1. SOLIRIS [Suspect]
     Indication: PAROXYSMAL NOCTURNAL HAEMOGLOBINURIA
     Dosage: 900 MG, Q2W
     Route: 042
  2. MINOPHAGEN C [Concomitant]
     Dosage: UNK
     Dates: start: 20110826
  3. PENICILLIN [Concomitant]
     Dosage: UNK
     Dates: start: 20110826

REACTIONS (5)
  - HEPATITIS C [None]
  - CONDITION AGGRAVATED [None]
  - EXTRAVASCULAR HAEMOLYSIS [None]
  - RENAL IMPAIRMENT [None]
  - INFECTION [None]
